FAERS Safety Report 5507357-9 (Version None)
Quarter: 2007Q4

REPORT INFORMATION
  Report Type: 
  Country: None (occurrence: None)
  Receive Date: 20071106
  Receipt Date: 20071031
  Transmission Date: 20080405
  Serious: Yes (Hospitalization)
  Sender: FDA-Public Use
  Company Number: PHEH2007US14289

PATIENT
  Sex: Male

DRUGS (1)
  1. TEKTURNA [Suspect]

REACTIONS (4)
  - CONTUSION [None]
  - GASTROINTESTINAL HAEMORRHAGE [None]
  - PETECHIAE [None]
  - PLATELET COUNT DECREASED [None]
